FAERS Safety Report 6985284-8 (Version None)
Quarter: 2010Q3

REPORT INFORMATION
  Report Type: 
  Country: None (occurrence: None)
  Receive Date: 20100915
  Receipt Date: 20100908
  Transmission Date: 20110219
  Serious: Yes (Death)
  Sender: FDA-Public Use
  Company Number: US-BAYER-201018736NA

PATIENT
  Age: 60 Year
  Sex: Male
  Weight: 91 kg

DRUGS (1)
  1. NEXAVAR [Suspect]
     Indication: RENAL CELL CARCINOMA
     Dosage: UNIT DOSE: 200 MG
     Route: 048
     Dates: start: 20100107

REACTIONS (6)
  - DEATH [None]
  - DRUG TOXICITY [None]
  - DRY SKIN [None]
  - LUNG NEOPLASM [None]
  - LYMPHADENOPATHY [None]
  - SKIN DISORDER [None]
